FAERS Safety Report 7011361-1 (Version None)
Quarter: 2010Q3

REPORT INFORMATION
  Report Type: 
  Country: None (occurrence: None)
  Receive Date: 20100923
  Receipt Date: 20090107
  Transmission Date: 20110219
  Serious: No
  Sender: FDA-Public Use
  Company Number: US-WYE-H07631609

PATIENT
  Age: 41 Year
  Sex: Female
  Weight: 64.47 kg

DRUGS (3)
  1. PREMARIN [Suspect]
     Indication: MENOPAUSE
     Route: 048
     Dates: start: 20040301, end: 20081227
  2. PREMARIN [Suspect]
     Route: 048
     Dates: start: 20081230
  3. ASCORBIC ACID [Concomitant]

REACTIONS (7)
  - DEHYDRATION [None]
  - DIZZINESS [None]
  - HYPERHIDROSIS [None]
  - NAUSEA [None]
  - URINE ODOUR ABNORMAL [None]
  - VOMITING [None]
  - WEIGHT INCREASED [None]
